FAERS Safety Report 4832460-6 (Version None)
Quarter: 2005Q4

REPORT INFORMATION
  Report Type: 
  Country: None (occurrence: None)
  Receive Date: 20051117
  Receipt Date: 20051103
  Transmission Date: 20060501
  Serious: Yes (Death, Hospitalization)
  Sender: FDA-Public Use
  Company Number: 2005-DE-04577GD

PATIENT
  Age: 67 Year
  Sex: Female

DRUGS (3)
  1. HYDROMORPHONE HCL [Suspect]
     Indication: BONE PAIN
     Dosage: SEE IMAGE
  2. BUPIVACAINE [Suspect]
     Indication: BONE PAIN
     Dosage: 6 MG
  3. FENTANYL [Suspect]
     Indication: BONE PAIN
     Dosage: BU
     Route: 002

REACTIONS (4)
  - CONDITION AGGRAVATED [None]
  - PAIN [None]
  - PATHOLOGICAL FRACTURE [None]
  - SPINAL COMPRESSION FRACTURE [None]
